FAERS Safety Report 8902692 (Version 3)
Quarter: 2013Q1

REPORT INFORMATION
  Report Type: Report from Study
  Country: CH (occurrence: CH)
  Receive Date: 20121112
  Receipt Date: 20130211
  Transmission Date: 20140127
  Serious: Yes (Life-Threatening, Other)
  Sender: FDA-Public Use
  Company Number: CH-GENZYME-CLOF-1002388

PATIENT
  Age: 44 None
  Sex: Male
  Weight: 65 kg

DRUGS (3)
  1. EVOLTRA [Suspect]
     Indication: ACUTE MYELOID LEUKAEMIA
     Dosage: 18 MCG, UNK, ONE VIAL  (CYCLE II)FREQUENCY: 10 MG/M2
     Route: 042
     Dates: start: 20121025, end: 20121029
  2. CYTARABINE [Suspect]
     Indication: ACUTE MYELOID LEUKAEMIA
     Dosage: 1850 MG, UNK
     Route: 042
     Dates: start: 20121025
  3. AMSACRINE [Suspect]
     Indication: ACUTE MYELOID LEUKAEMIA
     Dosage: 220 MG, UNK
     Route: 042
     Dates: start: 20121028

REACTIONS (7)
  - Low cardiac output syndrome [Unknown]
  - Atrial fibrillation [Unknown]
  - Enterocolitis [Unknown]
  - Bone marrow failure [Recovered/Resolved]
  - Respiratory failure [Unknown]
  - Sepsis [Recovered/Resolved]
  - Renal failure [Recovered/Resolved]
